FAERS Safety Report 4953913-6 (Version None)
Quarter: 2006Q1

REPORT INFORMATION
  Report Type: 
  Country: None (occurrence: None)
  Receive Date: 20060327
  Receipt Date: 20060310
  Transmission Date: 20060701
  Serious: Yes (Hospitalization, Other)
  Sender: FDA-Public Use
  Company Number: CHWYE462813MAR06

PATIENT
  Age: 56 Year
  Sex: Female
  Weight: 130 kg

DRUGS (13)
  1. ENBREL [Suspect]
     Indication: RHEUMATOID ARTHRITIS
     Route: 058
     Dates: start: 20060109, end: 20060124
  2. SALAZOPYRIN [Concomitant]
     Route: 048
     Dates: start: 20030501
  3. PLAQUENIL [Concomitant]
     Route: 048
     Dates: start: 20030501
  4. LODINE [Concomitant]
     Route: 048
  5. SPIRICORT [Concomitant]
  6. DILTIAZEM [Concomitant]
  7. TORSEMIDE [Concomitant]
  8. FOLVITE [Concomitant]
  9. GLUCOPHAGE [Concomitant]
  10. INSULATARD NPH HUMAN [Concomitant]
     Dosage: 40 IU AND 20 IU PER DAY
  11. COLECALCIFEROL [Concomitant]
  12. CALCIUM GLUCONATE [Concomitant]
  13. METHOTREXATE [Concomitant]
     Route: 058
     Dates: start: 20021001, end: 20051201

REACTIONS (7)
  - AGITATION [None]
  - ARTHRALGIA [None]
  - BLOOD PRESSURE INCREASED [None]
  - HEART RATE INCREASED [None]
  - NONSPECIFIC REACTION [None]
  - PHARYNGEAL OEDEMA [None]
  - SWELLING [None]
